FAERS Safety Report 7767059-5 (Version None)
Quarter: 2011Q3

REPORT INFORMATION
  Report Type: 
  Country: None (occurrence: None)
  Receive Date: 20110922
  Receipt Date: 20110307
  Transmission Date: 20111222
  Serious: Yes (Other)
  Sender: FDA-Public Use
  Company Number: US-ASTRAZENECA-2011SE13151

PATIENT
  Age: 37 Year
  Sex: Female

DRUGS (10)
  1. SEROQUEL [Suspect]
     Indication: BIPOLAR DISORDER
     Route: 048
     Dates: start: 20020101
  2. OXYCONTIN [Concomitant]
     Indication: ANALGESIC THERAPY
  3. REQUIPT [Concomitant]
  4. LAMICTAL [Concomitant]
  5. PRAMODOL [Concomitant]
  6. SEROQUEL [Suspect]
     Indication: DEPRESSION
     Route: 048
     Dates: start: 20020101
  7. KALOPONIN [Concomitant]
  8. ZOLOFT [Concomitant]
  9. RESTERIL [Concomitant]
  10. TEMAVEPAM [Concomitant]

REACTIONS (5)
  - SUICIDAL IDEATION [None]
  - CONNECTIVE TISSUE DISORDER [None]
  - SYSTEMIC LUPUS ERYTHEMATOSUS [None]
  - RHEUMATOID ARTHRITIS [None]
  - DRUG DOSE OMISSION [None]
